FAERS Safety Report 11957191 (Version 1)
Quarter: 2016Q1

REPORT INFORMATION
  Report Type: Spontaneous
  Country: CA (occurrence: CA)
  Receive Date: 20160126
  Receipt Date: 20160126
  Transmission Date: 20160526
  Serious: Yes (Death, Other)
  Sender: FDA-Public Use
  Company Number: CA-JNJFOC-20160118927

PATIENT
  Sex: Male

DRUGS (1)
  1. DARATUMUMAB [Suspect]
     Active Substance: DARATUMUMAB
     Indication: PLASMA CELL MYELOMA
     Route: 042

REACTIONS (10)
  - Dyspnoea [Unknown]
  - Platelet count decreased [Unknown]
  - Diarrhoea [Unknown]
  - Plasma cell myeloma [Fatal]
  - White blood cell count decreased [Unknown]
  - Red blood cell count decreased [Unknown]
  - Pneumonia [Unknown]
  - Infection [Unknown]
  - Pyrexia [Unknown]
  - Fatigue [Unknown]
